FAERS Safety Report 17139112 (Version 1)
Quarter: 2019Q4

REPORT INFORMATION
  Report Type: Spontaneous
  Country: SE (occurrence: SE)
  Receive Date: 20191211
  Receipt Date: 20191211
  Transmission Date: 20200122
  Serious: Yes (Hospitalization)
  Sender: FDA-Public Use
  Company Number: SE-TEVA-2019-SE-1149128

PATIENT
  Sex: Female

DRUGS (3)
  1. TRAMADOL. [Suspect]
     Active Substance: TRAMADOL
     Dosage: ^20 TRAMAODL^
     Route: 048
     Dates: start: 20180920, end: 20180920
  2. ZOPICLONE [Suspect]
     Active Substance: ZOPICLONE
     Dosage: ^10 ZPOIKOLN^
     Route: 048
     Dates: start: 20180920, end: 20180920
  3. LERGIGAN [PROMETHAZINE HYDROCHLORIDE] [Suspect]
     Active Substance: PROMETHAZINE HYDROCHLORIDE
     Dosage: ^100 LERGIGAN^
     Route: 048
     Dates: start: 20180920, end: 20180920

REACTIONS (2)
  - Intentional overdose [Unknown]
  - Intentional self-injury [Unknown]

NARRATIVE: CASE EVENT DATE: 20180920
